FAERS Safety Report 5642240-X (Version None)
Quarter: 2008Q1

REPORT INFORMATION
  Report Type: 
  Country: None (occurrence: None)
  Receive Date: 20080225
  Receipt Date: 20080207
  Transmission Date: 20080703
  Serious: Yes (Death, Congenital Anomaly)
  Sender: FDA-Public Use
  Company Number: S08-USA-00471-02

PATIENT

DRUGS (4)
  1. LEXAPRO [Suspect]
     Dates: start: 20020101, end: 20030201
  2. REBIF [Suspect]
     Dosage: 44 MCG TIW SC
     Route: 058
     Dates: start: 20030101, end: 20030201
  3. NEURONTIN [Suspect]
     Dates: start: 20020101, end: 20030201
  4. MECLIZINE [Suspect]
     Dates: start: 20020101, end: 20030201

REACTIONS (5)
  - CLEFT PALATE [None]
  - DRUG EXPOSURE DURING PREGNANCY [None]
  - INDUCED LABOUR [None]
  - LIMB MALFORMATION [None]
  - SKULL MALFORMATION [None]
